FAERS Safety Report 17125784 (Version 4)
Quarter: 2020Q1

REPORT INFORMATION
  Report Type: Spontaneous
  Country: AU (occurrence: AU)
  Receive Date: 20191208
  Receipt Date: 20200204
  Transmission Date: 20200409
  Serious: Yes (Death)
  Sender: FDA-Public Use
  Company Number: AU-BEH-2019110200

PATIENT
  Age: 55 Year
  Sex: Female

DRUGS (1)
  1. RIASTAP [Suspect]
     Active Substance: FIBRINOGEN HUMAN
     Indication: HAEMORRHAGE
     Dosage: UNK
     Route: 065
     Dates: start: 20191202, end: 20191202

REACTIONS (4)
  - Haemorrhage [Fatal]
  - Product use issue [Fatal]
  - Product use in unapproved indication [Fatal]
  - Product solubility abnormal [Fatal]

NARRATIVE: CASE EVENT DATE: 20191202
